FAERS Safety Report 8304132-7 (Version None)
Quarter: 2012Q2

REPORT INFORMATION
  Report Type: 
  Country: None (occurrence: None)
  Receive Date: 20120423
  Receipt Date: 20120418
  Transmission Date: 20120825
  Serious: No
  Sender: FDA-Public Use
  Company Number: US-PFIZER INC-2012096681

PATIENT
  Sex: Female
  Weight: 136 kg

DRUGS (10)
  1. IMURAN [Concomitant]
     Indication: PAIN
     Dosage: 50 MG, DAILY
     Dates: end: 20120417
  2. METHOTREXATE [Concomitant]
     Indication: PAIN
     Dosage: UNK, WEEKLY
  3. ZOCOR [Concomitant]
     Indication: BLOOD CHOLESTEROL ABNORMAL
     Dosage: 40 MG, DAILY
  4. CYMBALTA [Concomitant]
     Indication: PAIN IN EXTREMITY
     Dosage: UNK, DAILY
  5. VICODIN [Concomitant]
     Indication: PAIN IN EXTREMITY
     Dosage: 10/325 MG, 3X/DAY
  6. FLEXERIL [Concomitant]
     Indication: ARTHRALGIA
     Dosage: 10 MG, DAILY
  7. PREVACID [Concomitant]
     Indication: GASTROOESOPHAGEAL REFLUX DISEASE
     Dosage: 75 MG, DAILY
  8. TRAZODONE [Concomitant]
     Indication: SLEEP DISORDER
     Dosage: 300 MG, DAILY
  9. LYRICA [Suspect]
     Indication: FIBROMYALGIA
     Dosage: 225 MG, 2X/DAY
     Route: 048
  10. OMEPRAZOLE [Concomitant]
     Indication: GASTROOESOPHAGEAL REFLUX DISEASE
     Dosage: 20.6 MG, DAILY

REACTIONS (4)
  - NAUSEA [None]
  - DIZZINESS [None]
  - TREMOR [None]
  - WITHDRAWAL SYNDROME [None]
